FAERS Safety Report 14226809 (Version 1)
Quarter: 2017Q4

REPORT INFORMATION
  Report Type: Spontaneous
  Country: BR (occurrence: BR)
  Receive Date: 20171127
  Receipt Date: 20171127
  Transmission Date: 20180321
  Serious: Yes (Other)
  Sender: FDA-Public Use
  Company Number: BR-BAYER-2017-225799

PATIENT
  Sex: Male

DRUGS (1)
  1. ASPIRINA 100 MG [Suspect]
     Active Substance: ASPIRIN
     Indication: ANTICOAGULANT THERAPY
     Dosage: UNK
     Route: 048

REACTIONS (4)
  - Product use in unapproved indication [None]
  - Gastric disorder [None]
  - Off label use [None]
  - Thrombosis [None]
